FAERS Safety Report 15044049 (Version 1)
Quarter: 2018Q2

REPORT INFORMATION
  Report Type: Spontaneous
  Country: US (occurrence: US)
  Receive Date: 20180531
  Receipt Date: 20180531
  Transmission Date: 20180720
  Serious: No
  Sender: FDA-Public Use
  Company Number: None

PATIENT
  Sex: Female
  Weight: 83.46 kg

DRUGS (4)
  1. OTREXUP [Suspect]
     Active Substance: METHOTREXATE
     Route: 058
     Dates: start: 201412
  2. DICLOFENAC [Concomitant]
     Active Substance: DICLOFENAC
  3. LEUCOVORIN TABLET 5MG TABLET [Suspect]
     Active Substance: LEUCOVORIN
     Indication: RHEUMATOID ARTHRITIS
     Route: 048
     Dates: start: 201301
  4. LEUCOVORIN TABLET 5MG TABLET [Suspect]
     Active Substance: LEUCOVORIN
     Indication: OSTEOARTHRITIS

REACTIONS (1)
  - Sinusitis [None]
